FAERS Safety Report 4847394-0 (Version None)
Quarter: 2005Q4

REPORT INFORMATION
  Report Type: 
  Country: None (occurrence: None)
  Receive Date: 20051207
  Receipt Date: 20051123
  Transmission Date: 20060501
  Serious: Yes (Other)
  Sender: FDA-Public Use
  Company Number: 2005UW17885

PATIENT
  Age: 48 Year
  Sex: Male

DRUGS (4)
  1. CRESTOR [Interacting]
     Dosage: MONDAY WEDNESDAY FRIDAY
     Route: 048
  2. ZETIA [Suspect]
  3. ZETIA [Suspect]
     Dosage: RECHALLENGE
  4. POMEGRANATE JUICE [Interacting]

REACTIONS (2)
  - DRUG INTERACTION [None]
  - RHABDOMYOLYSIS [None]
